FAERS Safety Report 9255700 (Version 2)
Quarter: 2013Q4

REPORT INFORMATION
  Report Type: Spontaneous
  Country: GB (occurrence: GB)
  Receive Date: 20130425
  Receipt Date: 20131008
  Transmission Date: 20140711
  Serious: Yes (Other)
  Sender: FDA-Public Use
  Company Number: PHHY2013GB038405

PATIENT
  Age: 61 Year
  Sex: Female
  Weight: 63.5 kg

DRUGS (9)
  1. SERTRALINE [Suspect]
     Indication: DEPRESSION
     Dosage: 50 MG, QD TOTAL DOSE
     Dates: start: 20130327, end: 20130328
  2. ZOLPIDEM [Suspect]
     Indication: INSOMNIA
     Dosage: 15 MG, AT NIGHT (TAKING FOR YEARS)
  3. PARACETAMOL [Suspect]
  4. AMITRIPTYLINE [Suspect]
     Indication: PAIN
     Dosage: 10 MG, ( TAKING FOR YEARS, NOW TAKING ONE OR TWO)
  5. DIAZEPAM [Concomitant]
  6. THYROXINE [Concomitant]
  7. LACTULOSE [Concomitant]
  8. SENNA [Concomitant]
  9. GLYCERIN [Concomitant]

REACTIONS (14)
  - Neck pain [Not Recovered/Not Resolved]
  - Pain in extremity [Not Recovered/Not Resolved]
  - Drooling [Not Recovered/Not Resolved]
  - Insomnia [Not Recovered/Not Resolved]
  - Gait disturbance [Not Recovered/Not Resolved]
  - Movement disorder [Not Recovered/Not Resolved]
  - Syncope [Not Recovered/Not Resolved]
  - Malaise [Not Recovered/Not Resolved]
  - Headache [Not Recovered/Not Resolved]
  - Fatigue [Not Recovered/Not Resolved]
  - Contusion [Unknown]
  - Blood pressure fluctuation [Unknown]
  - Hyperthyroidism [Unknown]
  - Blood glucose fluctuation [Unknown]
